FAERS Safety Report 12468966 (Version 1)
Quarter: 2016Q2

REPORT INFORMATION
  Report Type: Spontaneous
  Country: JP (occurrence: JP)
  Receive Date: 20160615
  Receipt Date: 20160615
  Transmission Date: 20160815
  Serious: Yes (Other)
  Sender: FDA-Public Use
  Company Number: JP-009507513-1606JPN003562

PATIENT

DRUGS (1)
  1. GANIREST [Suspect]
     Active Substance: GANIRELIX ACETATE
     Dosage: DIALY DOSE UNKNOWN
     Route: 065

REACTIONS (2)
  - Haemorrhage [Unknown]
  - Injury associated with device [Unknown]
